FAERS Safety Report 6594132-X (Version None)
Quarter: 2010Q1

REPORT INFORMATION
  Report Type: 
  Country: None (occurrence: None)
  Receive Date: 20100222
  Receipt Date: 20100215
  Transmission Date: 20100710
  Serious: Yes (Life-Threatening)
  Sender: FDA-Public Use
  Company Number: JP-ROCHE-684187

PATIENT
  Sex: Male
  Weight: 63 kg

DRUGS (7)
  1. AVASTIN [Suspect]
     Indication: RECTAL CANCER RECURRENT
     Route: 041
     Dates: start: 20100106, end: 20100106
  2. ELPLAT [Concomitant]
     Route: 044
     Dates: start: 20100106, end: 20100106
  3. 5-FU [Concomitant]
     Dosage: ROUTE: INTRAVENOUS DRIP
     Route: 042
     Dates: start: 20100106
  4. 5-FU [Concomitant]
     Dosage: INTRAVENOUS BOLOUS FOLLWOED BY INTRAVENOUS DRIP.
     Route: 042
     Dates: start: 20100106, end: 20100108
  5. LEVOFOLINATE [Concomitant]
     Route: 041
     Dates: start: 20100106, end: 20100101
  6. LOXONIN [Concomitant]
     Dosage: FORM: PERORAL AGENT
     Route: 048
     Dates: start: 20091201
  7. CYTOTEC [Concomitant]
     Route: 048
     Dates: start: 20091201

REACTIONS (4)
  - GASTROENTERITIS RADIATION [None]
  - ILEAL PERFORATION [None]
  - INTESTINAL OBSTRUCTION [None]
  - PERITONITIS [None]
